FAERS Safety Report 6531524-9 (Version None)
Quarter: 2010Q1

REPORT INFORMATION
  Report Type: 
  Country: None (occurrence: None)
  Receive Date: 20100108
  Receipt Date: 20091230
  Transmission Date: 20100710
  Serious: Yes (Other)
  Sender: FDA-Public Use
  Company Number: US-SANOFI-AVENTIS-2010SA000388

PATIENT
  Age: 67 Year
  Sex: Male

DRUGS (4)
  1. LANTUS [Suspect]
     Dosage: CONSUMER REPORTED ON LANTUS FOR ^YEARS^. DOSE:160 UNIT(S)
     Route: 058
  2. OPTICLICK [Suspect]
     Dosage: CONSUMER REPORTED USING OPTICLIK 3 YEARS AGO.
     Dates: start: 20060101
  3. NOVOLOG MIX 70/30 [Suspect]
     Dosage: IN AM DOSE:45 UNIT(S)
     Route: 058
  4. HUMALOG [Suspect]
     Dosage: PER SLIDING SCALE WITH MEALS
     Route: 058

REACTIONS (1)
  - COLON CANCER [None]
